FAERS Safety Report 6717084-8 (Version None)
Quarter: 2010Q2

REPORT INFORMATION
  Report Type: 
  Country: None (occurrence: None)
  Receive Date: 20100505
  Receipt Date: 20100428
  Transmission Date: 20101027
  Serious: Yes (Life-Threatening, Congenital Anomaly, Other)
  Sender: FDA-Public Use
  Company Number: 006392

PATIENT

DRUGS (3)
  1. KEPPRA [Suspect]
     Indication: CONVULSION
     Dosage: (500 MG BID, FROM MORE THAN 5 YEARS TRANSPLACENTAL)
     Route: 064
  2. TYLENOL (CAPLET) [Suspect]
     Indication: HEADACHE
     Dosage: (TRANSPLACENTAL)
     Route: 064
  3. PRENATAL VITAMINS /01549301/ [Concomitant]

REACTIONS (2)
  - ANENCEPHALY [None]
  - MATERNAL DRUGS AFFECTING FOETUS [None]
